FAERS Safety Report 5973058-6 (Version None)
Quarter: 2008Q4

REPORT INFORMATION
  Report Type: 
  Country: None (occurrence: None)
  Receive Date: 20081201
  Receipt Date: 20081125
  Transmission Date: 20090506
  Serious: Yes (Hospitalization)
  Sender: FDA-Public Use
  Company Number: GB-TEVA-181241ISR

PATIENT
  Age: 39 Year
  Sex: Female

DRUGS (2)
  1. CLARITHROMYCIN [Suspect]
     Route: 048
     Dates: start: 20080606
  2. PREDNISOLONE [Suspect]
     Indication: BRONCHOSPASM
     Route: 048
     Dates: start: 20080529, end: 20080615

REACTIONS (4)
  - DEPRESSED LEVEL OF CONSCIOUSNESS [None]
  - DISORIENTATION [None]
  - ENCEPHALITIS VIRAL [None]
  - PSYCHOTIC DISORDER [None]
